FAERS Safety Report 4982159-0 (Version None)
Quarter: 2006Q2

REPORT INFORMATION
  Report Type: 
  Country: None (occurrence: None)
  Receive Date: 20060425
  Receipt Date: 20051114
  Transmission Date: 20061013
  Serious: Yes (Death, Other)
  Sender: FDA-Public Use
  Company Number: US-MERCK-0511USA02616

PATIENT
  Sex: Female
  Weight: 109 kg

DRUGS (2)
  1. VIOXX [Suspect]
     Route: 048
     Dates: start: 20020901
  2. TYLENOL (CAPLET) [Concomitant]
     Route: 065

REACTIONS (3)
  - CEREBROVASCULAR ACCIDENT [None]
  - DEATH [None]
  - OVERDOSE [None]
